FAERS Safety Report 20663542 (Version 1)
Quarter: 2022Q2

REPORT INFORMATION
  Report Type: Spontaneous
  Country: US (occurrence: US)
  Receive Date: 20220401
  Receipt Date: 20220401
  Transmission Date: 20220720
  Serious: No
  Sender: FDA-Public Use
  Company Number: US-MYLANLABS-2022M1022274

PATIENT
  Weight: 56.7 kg

DRUGS (1)
  1. ESTRADIOL TRANSDERMAL SYSTEM [Suspect]
     Active Substance: ESTRADIOL
     Indication: Hormone replacement therapy
     Dosage: 0.025 MILLIGRAM, QD(ONCE A WEEK)
     Route: 062

REACTIONS (3)
  - Application site irritation [Unknown]
  - Application site erythema [Unknown]
  - Application site pruritus [Unknown]
